FAERS Safety Report 6568403-7 (Version None)
Quarter: 2010Q1

REPORT INFORMATION
  Report Type: 
  Country: None (occurrence: None)
  Receive Date: 20100128
  Receipt Date: 20100113
  Transmission Date: 20100710
  Serious: Yes (Other)
  Sender: FDA-Public Use
  Company Number: 2009BI041910

PATIENT
  Age: 71 Year
  Sex: Male

DRUGS (14)
  1. ZEVALIN [Suspect]
     Indication: MANTLE CELL LYMPHOMA STAGE IV
     Dosage: 863 MBQ; 1X; IV
     Route: 042
     Dates: start: 20091007, end: 20091014
  2. RITUXIMAB [Concomitant]
  3. ASPIRIN [Concomitant]
  4. IBRUPROFEN [Concomitant]
  5. POLARAMINE [Concomitant]
  6. DIOVAN [Concomitant]
  7. CALSLOT [Concomitant]
  8. BAKTAR [Concomitant]
  9. OMEPRAL [Concomitant]
  10. MITOXANTRONE HYDROCHLORIDE [Concomitant]
  11. ETOPOSIDE [Concomitant]
  12. CARBOPLATIN [Concomitant]
  13. DEXAMETHASONE [Concomitant]
  14. FLUDEOXYGLUCOSE [Concomitant]

REACTIONS (2)
  - BONE MARROW FAILURE [None]
  - HEPATIC FUNCTION ABNORMAL [None]
